FAERS Safety Report 7328591-1 (Version None)
Quarter: 2011Q1

REPORT INFORMATION
  Report Type: 
  Country: None (occurrence: None)
  Receive Date: 20110225
  Receipt Date: 20110225
  Transmission Date: 20110831
  Serious: Yes (Life-Threatening, Hospitalization)
  Sender: FDA-Public Use
  Company Number: None

PATIENT
  Age: 49 Year
  Sex: Male
  Weight: 71.2147 kg

DRUGS (2)
  1. BACTRIM DS [Suspect]
     Indication: STAPHYLOCOCCAL INFECTION
     Dosage: DS BID PO
     Route: 048
     Dates: start: 20100608, end: 20100616
  2. BACTRIM DS [Suspect]
     Indication: CELLULITIS
     Dosage: DS BID PO
     Route: 048
     Dates: start: 20100608, end: 20100616

REACTIONS (7)
  - PAIN [None]
  - FLUSHING [None]
  - CHILLS [None]
  - HYPERHIDROSIS [None]
  - AGRANULOCYTOSIS [None]
  - RASH [None]
  - PYREXIA [None]
